FAERS Safety Report 5129900-4 (Version None)
Quarter: 2006Q4

REPORT INFORMATION
  Report Type: 
  Country: None (occurrence: None)
  Receive Date: 20061013
  Receipt Date: 20061002
  Transmission Date: 20070319
  Serious: Yes (Other)
  Sender: FDA-Public Use
  Company Number: 14904

PATIENT
  Age: 43 Year
  Sex: Female

DRUGS (4)
  1. FLUOROURACIL [Suspect]
     Indication: BREAST CANCER
     Dosage: 600 MG/M2 PER_CYCLE IV
     Route: 042
     Dates: start: 20010801
  2. METHOTREXATE SODIUM [Suspect]
     Indication: BREAST CANCER
     Dosage: 40 MG/M2 PER_CYCLE IV
     Route: 042
     Dates: start: 20010801
  3. CYCLOPHOSPHAMIDE [Suspect]
     Indication: BREAST CANCER
     Dosage: 100 MG/M2 PER_CYCLE PO
     Route: 048
     Dates: start: 20010801
  4. TAMOXIFEN CITRATE [Concomitant]

REACTIONS (8)
  - ACTIVATED PARTIAL THROMBOPLASTIN TIME PROLONGED [None]
  - ACUTE PROMYELOCYTIC LEUKAEMIA [None]
  - AUTOSOMAL CHROMOSOME ANOMALY [None]
  - BLOOD LACTATE DEHYDROGENASE INCREASED [None]
  - BLOOD URIC ACID INCREASED [None]
  - COMA [None]
  - HAEMORRHAGE INTRACRANIAL [None]
  - PROTHROMBIN TIME PROLONGED [None]
